FAERS Safety Report 25123745 (Version 3)
Quarter: 2025Q2

REPORT INFORMATION
  Report Type: Report from Study
  Country: US (occurrence: US)
  Receive Date: 20250326
  Receipt Date: 20250508
  Transmission Date: 20250717
  Serious: No
  Sender: SUNOVION
  Company Number: US-SMPA-2025SPA002528AA

PATIENT

DRUGS (13)
  1. ORGOVYX [Suspect]
     Active Substance: RELUGOLIX
     Indication: Prostate cancer
     Dosage: 360 MG, SINGLE
     Route: 048
     Dates: start: 202501, end: 202501
  2. ORGOVYX [Suspect]
     Active Substance: RELUGOLIX
     Dosage: 120 MG, QD
     Route: 048
     Dates: start: 202501
  3. ALBUTEROL SULFATE [Concomitant]
     Active Substance: ALBUTEROL SULFATE
     Route: 065
  4. ASPIRIN [Concomitant]
     Active Substance: ASPIRIN
     Route: 065
  5. CALCIUM CARBONATE\VITAMIN D [Concomitant]
     Active Substance: CALCIUM CARBONATE\VITAMIN D
     Route: 065
  6. VITAMIN B12 [Concomitant]
     Active Substance: CYANOCOBALAMIN
     Route: 065
  7. VITAMIN C [Concomitant]
     Active Substance: ASCORBIC ACID
     Route: 065
  8. VITAMINS [Concomitant]
     Active Substance: VITAMINS
     Route: 065
  9. FINASTERIDE [Concomitant]
     Active Substance: FINASTERIDE
     Route: 065
  10. LISINOPRIL [Concomitant]
     Active Substance: LISINOPRIL
     Route: 065
  11. METOPROLOL [Concomitant]
     Active Substance: METOPROLOL
     Route: 065
  12. ROSUVASTATIN [Concomitant]
     Active Substance: ROSUVASTATIN
     Route: 065
  13. TRELEGY ELLIPTA [Concomitant]
     Active Substance: FLUTICASONE FUROATE\UMECLIDINIUM BROMIDE\VILANTEROL TRIFENATATE
     Route: 065

REACTIONS (4)
  - Pain [Unknown]
  - Myalgia [Unknown]
  - Hot flush [Not Recovered/Not Resolved]
  - Fatigue [Unknown]
